FAERS Safety Report 14830650 (Version 2)
Quarter: 2018Q3

REPORT INFORMATION
  Report Type: Spontaneous
  Country: US (occurrence: US)
  Receive Date: 20180430
  Receipt Date: 20180705
  Transmission Date: 20181010
  Serious: No
  Sender: FDA-Public Use
  Company Number: US-SA-2018SA087415

PATIENT
  Age: 65 Year
  Sex: Female

DRUGS (2)
  1. PRALUENT [Suspect]
     Active Substance: ALIROCUMAB
     Indication: ARTERIOSCLEROSIS
  2. PRALUENT [Suspect]
     Active Substance: ALIROCUMAB
     Indication: HYPERLIPIDAEMIA
     Dosage: 150 MG,QOW
     Route: 058
     Dates: start: 20171207

REACTIONS (3)
  - Nasopharyngitis [Unknown]
  - Rhinorrhoea [Unknown]
  - Back pain [Unknown]

NARRATIVE: CASE EVENT DATE: 20180301
